FAERS Safety Report 6654103-1 (Version None)
Quarter: 2010Q1

REPORT INFORMATION
  Report Type: 
  Country: None (occurrence: None)
  Receive Date: 20100326
  Receipt Date: 20100326
  Transmission Date: 20100710
  Serious: Yes (Hospitalization)
  Sender: FDA-Public Use
  Company Number: PHHO2007CA06303

PATIENT
  Sex: Female
  Weight: 60.2 kg

DRUGS (3)
  1. ZOLEDRONIC ACID [Suspect]
     Indication: OSTEOPOROSIS POSTMENOPAUSAL
     Dosage: UNK
     Route: 042
     Dates: start: 20060419
  2. CALCIUM [Concomitant]
     Indication: OSTEOPOROSIS POSTMENOPAUSAL
  3. VITAMIN D [Concomitant]
     Indication: OSTEOPOROSIS POSTMENOPAUSAL

REACTIONS (6)
  - DIARRHOEA [None]
  - DYSPHAGIA [None]
  - DYSPNOEA [None]
  - LARYNGITIS [None]
  - OROPHARYNGEAL PAIN [None]
  - PHARYNGEAL OEDEMA [None]
